FAERS Safety Report 13274202 (Version 1)
Quarter: 2017Q1

REPORT INFORMATION
  Report Type: Spontaneous
  Country: CA (occurrence: CA)
  Receive Date: 20170227
  Receipt Date: 20170227
  Transmission Date: 20170428
  Serious: Yes (Other)
  Sender: FDA-Public Use
  Company Number: CA-TEVA-743029ACC

PATIENT
  Sex: Female

DRUGS (1)
  1. QUETIAPINE XR [Suspect]
     Active Substance: QUETIAPINE

REACTIONS (3)
  - Anxiety [Recovered/Resolved]
  - Depression [Recovered/Resolved]
  - Therapeutic response decreased [Recovered/Resolved]
